FAERS Safety Report 5211201-7 (Version None)
Quarter: 2006Q4

REPORT INFORMATION
  Report Type: 
  Country: None (occurrence: None)
  Receive Date: 20061114
  Receipt Date: 20060921
  Transmission Date: 20070319
  Serious: No
  Sender: FDA-Public Use
  Company Number: S06-USA-03850-01

PATIENT
  Age: 80 Year
  Sex: Male

DRUGS (3)
  1. NAMENDA [Suspect]
     Dosage: 5 MG QD PO
     Route: 048
     Dates: start: 20060901, end: 20060901
  2. NAMENDA [Suspect]
     Dosage: 5 MG BID PO
     Route: 048
     Dates: start: 20060901, end: 20060901
  3. NAMENDA [Suspect]
     Dosage: 15 MG QD PO
     Route: 048
     Dates: start: 20060901

REACTIONS (1)
  - VISION BLURRED [None]
